FAERS Safety Report 13349386 (Version 1)
Quarter: 2017Q1

REPORT INFORMATION
  Report Type: Other
  Country: IT (occurrence: IT)
  Receive Date: 20170320
  Receipt Date: 20170320
  Transmission Date: 20170428
  Serious: Yes (Other)
  Sender: FDA-Public Use
  Company Number: IT-AUROBINDO-AUR-APL-2013-08016

PATIENT

DRUGS (1)
  1. AMOXICILLINA TABLETS 1G [Suspect]
     Active Substance: AMOXICILLIN
     Indication: OROPHARYNGEAL PAIN
     Dosage: 2 G,DAILY,
     Route: 048
     Dates: start: 20130628, end: 20130702

REACTIONS (4)
  - Pruritus [Recovering/Resolving]
  - Rash generalised [Recovering/Resolving]
  - Dermatitis bullous [Recovering/Resolving]
  - Rash papular [Recovering/Resolving]

NARRATIVE: CASE EVENT DATE: 20130702
